FAERS Safety Report 6792979-8 (Version None)
Quarter: 2010Q2

REPORT INFORMATION
  Report Type: 
  Country: None (occurrence: None)
  Receive Date: 20100624
  Receipt Date: 20090205
  Transmission Date: 20101027
  Serious: Yes (Other)
  Sender: FDA-Public Use
  Company Number: US-PFIZER INC-2008092616

PATIENT
  Sex: Female
  Weight: 70.3 kg

DRUGS (4)
  1. GEODON [Suspect]
     Indication: BIPOLAR DISORDER
     Dosage: 80 MG, 1X/DAY
  2. CELEXA [Concomitant]
     Dosage: 40 MG, 1X/DAY
  3. STRATTERA [Concomitant]
     Dosage: DAILY
  4. ELAVIL [Concomitant]
     Dosage: 50 MG, 1X/DAY

REACTIONS (1)
  - TARDIVE DYSKINESIA [None]
